FAERS Safety Report 14841013 (Version 2)
Quarter: 2018Q2

REPORT INFORMATION
  Report Type: Other
  Country: US (occurrence: US)
  Receive Date: 20180503
  Receipt Date: 20180517
  Transmission Date: 20180711
  Serious: Yes (Other)
  Sender: FDA-Public Use
  Company Number: US-VELOXIS PHARMACEUTICALS-2047083

PATIENT
  Age: 45 Year
  Sex: Female

DRUGS (2)
  1. ENVARSUS XR [Suspect]
     Active Substance: TACROLIMUS
     Indication: IMMUNOSUPPRESSANT DRUG THERAPY
     Route: 065
  2. SIMULECT [Concomitant]
     Active Substance: BASILIXIMAB

REACTIONS (3)
  - Atypical haemolytic uraemic syndrome [Recovered/Resolved]
  - Renal tubular injury [Recovered/Resolved]
  - Renal tubular necrosis [Recovered/Resolved]
